FAERS Safety Report 7326158-2 (Version None)
Quarter: 2011Q1

REPORT INFORMATION
  Report Type: 
  Country: None (occurrence: None)
  Receive Date: 20110302
  Receipt Date: 20110224
  Transmission Date: 20110831
  Serious: Yes (Death)
  Sender: FDA-Public Use
  Company Number: NL-ROCHE-762216

PATIENT
  Sex: Female

DRUGS (1)
  1. MIRCERA [Suspect]
     Dosage: DOSE: 50UG/0.3ML
     Route: 058
     Dates: start: 20101219

REACTIONS (1)
  - DEATH [None]
